FAERS Safety Report 7943777-0 (Version None)
Quarter: 2011Q4

REPORT INFORMATION
  Report Type: 
  Country: None (occurrence: None)
  Receive Date: 20111128
  Receipt Date: 20111117
  Transmission Date: 20120403
  Serious: Yes (Other)
  Sender: FDA-Public Use
  Company Number: FR-ROCHE-1014375

PATIENT
  Age: 51 Year
  Sex: Female

DRUGS (4)
  1. PEGASYS [Suspect]
     Indication: HEPATITIS C
  2. LEVOTHYROXINE SODIUM [Concomitant]
  3. COPEGUS [Suspect]
     Indication: HEPATITIS C
  4. EFFEXOR [Concomitant]

REACTIONS (2)
  - TENOSYNOVITIS STENOSANS [None]
  - FATIGUE [None]
